FAERS Safety Report 5489570-2 (Version None)
Quarter: 2007Q4

REPORT INFORMATION
  Report Type: 
  Country: None (occurrence: None)
  Receive Date: 20071016
  Receipt Date: 20071016
  Transmission Date: 20080405
  Serious: Yes (Other)
  Sender: FDA-Public Use
  Company Number: None

PATIENT
  Sex: Female
  Weight: 86.1834 kg

DRUGS (2)
  1. ENBREL [Suspect]
     Indication: RHEUMATOID ARTHRITIS
     Dosage: 50 MG  1 Q WEEK  SQ
     Route: 058
     Dates: start: 20060101, end: 20070801
  2. METHOTREXATE [Suspect]
     Dosage: 25 MG/ML  1 Q WEEK  SQ
     Route: 058
     Dates: start: 20060101, end: 20070801

REACTIONS (2)
  - LUNG NEOPLASM [None]
  - RENAL CELL CARCINOMA STAGE UNSPECIFIED [None]
